FAERS Safety Report 14876872 (Version 1)
Quarter: 2018Q2

REPORT INFORMATION
  Report Type: Other
  Country: IN (occurrence: IN)
  Receive Date: 20180510
  Receipt Date: 20180510
  Transmission Date: 20180711
  Serious: Yes (Life-Threatening, Hospitalization)
  Sender: FDA-Public Use
  Company Number: IN-NOSTRUM LABORATORIES, INC.-2047565

PATIENT
  Age: 19 Year
  Sex: Male

DRUGS (1)
  1. DAPSONE. [Suspect]
     Active Substance: DAPSONE
     Indication: BORDERLINE LEPROSY
     Route: 048

REACTIONS (4)
  - Methaemoglobinaemia [None]
  - Jaundice [Recovered/Resolved]
  - Haemolytic anaemia [Recovered/Resolved]
  - Nephrotic syndrome [Unknown]
